FAERS Safety Report 12121364 (Version 3)
Quarter: 2016Q2

REPORT INFORMATION
  Report Type: Spontaneous
  Country: US (occurrence: US)
  Receive Date: 20160226
  Receipt Date: 20160408
  Transmission Date: 20160815
  Serious: Yes (Other)
  Sender: FDA-Public Use
  Company Number: US-DSJP-DSU-2013-05144

PATIENT

DRUGS (12)
  1. XANAX [Suspect]
     Active Substance: ALPRAZOLAM
     Indication: ANXIETY
     Dosage: 0.75 MG, UNK
  2. LEVOTHYROXINE. [Concomitant]
     Active Substance: LEVOTHYROXINE
     Dosage: UNKNOWN QOD
     Dates: start: 2009
  3. CIPROFLOXACIN. [Suspect]
     Active Substance: CIPROFLOXACIN
     Indication: BRONCHITIS
     Dosage: UNKNOWN UNKNOWN    EVERY
     Route: 042
     Dates: start: 199711
  4. CIPROFLOXACIN. [Suspect]
     Active Substance: CIPROFLOXACIN
     Dosage: UNKNOWN UNKNOWN    EVERY
     Route: 042
     Dates: start: 199802
  5. PREDNISONE. [Suspect]
     Active Substance: PREDNISONE
     Indication: PRODUCT USED FOR UNKNOWN INDICATION
     Dosage: 60 MG, QD
     Dates: start: 20130311
  6. LEVOTHYROXINE. [Concomitant]
     Active Substance: LEVOTHYROXINE
     Indication: AUTOIMMUNE THYROIDITIS
     Dosage: 0.5 MG ONE DAY AND 0.75 MG NEXT DAY
  7. XANAX [Suspect]
     Active Substance: ALPRAZOLAM
     Indication: PANIC ATTACK
  8. GELFOAM [Suspect]
     Active Substance: GELATIN\THROMBIN HUMAN
     Indication: FACIAL OPERATION
     Dosage: UNK
     Dates: start: 20130307
  9. NEOMYCIN SULFATE. [Suspect]
     Active Substance: NEOMYCIN SULFATE
     Indication: PRODUCT USED FOR UNKNOWN INDICATION
  10. CIPROFLOXACIN. [Suspect]
     Active Substance: CIPROFLOXACIN
     Indication: KIDNEY INFECTION
     Dosage: UNKNOWN UNKNOWN    EVERY
     Route: 042
     Dates: start: 1997, end: 1997
  11. FLOXIN OTIC [Suspect]
     Active Substance: OFLOXACIN
     Indication: INFECTION PROPHYLAXIS
     Dosage: UNK
     Route: 001
     Dates: start: 1997
  12. FLOXIN OTIC [Suspect]
     Active Substance: OFLOXACIN
     Dosage: UNK
     Dates: start: 20130307

REACTIONS (39)
  - Pain of skin [Unknown]
  - Dry mouth [Unknown]
  - Erythema [Unknown]
  - Drug interaction [Unknown]
  - Tinnitus [Unknown]
  - Off label use [Unknown]
  - Facial nerve decompression [Unknown]
  - Irritable bowel syndrome [Unknown]
  - Dry eye [Unknown]
  - Chest discomfort [Unknown]
  - Fibromyalgia [Unknown]
  - Rosacea [Unknown]
  - Lipoma [Unknown]
  - Hyperacusis [Unknown]
  - Thyroid disorder [Unknown]
  - Deafness unilateral [Not Recovered/Not Resolved]
  - Appendicectomy [Unknown]
  - Neuropathy peripheral [Unknown]
  - Tendon pain [Unknown]
  - Antinuclear antibody positive [Unknown]
  - Optic neuritis [Unknown]
  - Condition aggravated [Unknown]
  - Vision blurred [Unknown]
  - Cataract [Unknown]
  - Feeling abnormal [Unknown]
  - Abdominal pain upper [Unknown]
  - Glossodynia [Unknown]
  - Acne [Unknown]
  - Cyst [Unknown]
  - Malaise [Unknown]
  - Antineutrophil cytoplasmic antibody positive [Unknown]
  - Tachycardia [Unknown]
  - Hypoaesthesia [Unknown]
  - Drug hypersensitivity [Unknown]
  - Headache [Unknown]
  - Panic attack [Unknown]
  - Tendonitis [Unknown]
  - Arthralgia [Unknown]
  - Gastrointestinal disorder [Unknown]

NARRATIVE: CASE EVENT DATE: 1997
